FAERS Safety Report 10257828 (Version 1)
Quarter: 2014Q2

REPORT INFORMATION
  Report Type: Spontaneous
  Country: IT (occurrence: IT)
  Receive Date: 20140625
  Receipt Date: 20140625
  Transmission Date: 20141212
  Serious: Yes (Hospitalization)
  Sender: FDA-Public Use
  Company Number: IT-ROCHE-1423037

PATIENT
  Age: 78 Year
  Sex: Female

DRUGS (5)
  1. ROCEFIN [Suspect]
     Indication: PRODUCT USED FOR UNKNOWN INDICATION
     Route: 030
     Dates: start: 20140107, end: 20140107
  2. LASIX [Concomitant]
     Route: 065
  3. BISOPROLOL [Concomitant]
     Route: 048
  4. ASCRIPTIN (ITALY) [Concomitant]
     Route: 065
  5. LANSOX [Concomitant]
     Route: 048

REACTIONS (1)
  - Dyspnoea [Unknown]
